FAERS Safety Report 9486240 (Version 1)
Quarter: 2013Q3

REPORT INFORMATION
  Report Type: Spontaneous
  Country: US (occurrence: None)
  Receive Date: 20130827
  Receipt Date: 20130827
  Transmission Date: 20140515
  Serious: No
  Sender: FDA-Public Use
  Company Number: None

PATIENT
  Age: 71 Year
  Sex: Female
  Weight: 54.43 kg

DRUGS (1)
  1. DEXILANT [Suspect]
     Indication: GASTROOESOPHAGEAL REFLUX DISEASE
     Dosage: 60 MG 1 CAPSULE A DAY BY MOUTH
     Route: 048
     Dates: start: 20130618, end: 20130717

REACTIONS (2)
  - Pruritus [None]
  - Urticaria [None]
